FAERS Safety Report 16823169 (Version 1)
Quarter: 2019Q3

REPORT INFORMATION
  Report Type: Spontaneous
  Country: US (occurrence: US)
  Receive Date: 20190918
  Receipt Date: 20190918
  Transmission Date: 20191005
  Serious: No
  Sender: FDA-Public Use
  Company Number: US-OCULAR THERAPEUTIX-2019OCX00021

PATIENT
  Age: 79 Year
  Sex: Female

DRUGS (3)
  1. DEXTENZA [Suspect]
     Active Substance: DEXAMETHASONE
     Indication: CATARACT OPERATION
     Dosage: 0.4 MG, ONCE
     Route: 047
     Dates: start: 20190808, end: 20190808
  2. ILEVRO [Concomitant]
     Active Substance: NEPAFENAC
     Dosage: UNK, 1X/DAY
     Route: 047
  3. MOXIFLOXACIN. [Concomitant]
     Active Substance: MOXIFLOXACIN
     Dosage: UNK, 3X/DAY
     Route: 047

REACTIONS (3)
  - Corneal disorder [Recovering/Resolving]
  - Anterior chamber cell [Recovering/Resolving]
  - Eye inflammation [Recovering/Resolving]

NARRATIVE: CASE EVENT DATE: 20190820
